FAERS Safety Report 19511360 (Version 2)
Quarter: 2021Q4

REPORT INFORMATION
  Report Type: Spontaneous
  Country: US (occurrence: US)
  Receive Date: 20210709
  Receipt Date: 20211104
  Transmission Date: 20220303
  Serious: Yes (Hospitalization, Other)
  Sender: FDA-Public Use
  Company Number: US-PFIZER INC-2021389178

PATIENT
  Age: 59 Year
  Sex: Female

DRUGS (1)
  1. IBRANCE [Suspect]
     Active Substance: PALBOCICLIB
     Indication: Breast cancer female
     Dosage: 125 MG, CYCLIC (TAKE 1 TAB PO FOR 21 DAYS, THEN OFF FOR 7 DAYS, EACH 28 DAY CYCLE)
     Route: 048
     Dates: start: 20200519, end: 2021

REACTIONS (4)
  - Spinal stenosis [Unknown]
  - Myalgia [Unknown]
  - Arthralgia [Unknown]
  - Nausea [Unknown]
